FAERS Safety Report 16335362 (Version 1)
Quarter: 2019Q2

REPORT INFORMATION
  Report Type: Report from Study
  Country: None (occurrence: CO)
  Receive Date: 20190521
  Receipt Date: 20190521
  Transmission Date: 20190711
  Serious: Yes (Other)
  Sender: FDA-Public Use
  Company Number: CO-ABBVIE-19K-036-2790512-00

PATIENT
  Age: 53 Year
  Sex: Male
  Weight: 92 kg

DRUGS (2)
  1. HUMIRA [Suspect]
     Active Substance: ADALIMUMAB
     Indication: ANKYLOSING SPONDYLITIS
     Route: 058
     Dates: start: 20170523
  2. HUMIRA [Suspect]
     Active Substance: ADALIMUMAB
     Dosage: HUMIRA AC
     Route: 058
     Dates: end: 20190408

REACTIONS (3)
  - Arthralgia [Recovering/Resolving]
  - Spinal fusion acquired [Recovering/Resolving]
  - Device loosening [Unknown]

NARRATIVE: CASE EVENT DATE: 201811
